FAERS Safety Report 4712786-7 (Version None)
Quarter: 2005Q3

REPORT INFORMATION
  Report Type: 
  Country: None (occurrence: None)
  Receive Date: 20050711
  Receipt Date: 20050711
  Transmission Date: 20060218
  Serious: Yes (Hospitalization)
  Sender: FDA-Public Use
  Company Number: None

PATIENT
  Age: 70 Year
  Sex: Male
  Weight: 83 kg

DRUGS (2)
  1. AMIFOSTINE [Suspect]
     Indication: HYPOPHARYNGEAL CANCER
     Dosage: 500 MG, DAILY, IV
     Route: 042
  2. CISPLATIN [Concomitant]

REACTIONS (20)
  - ARTHRALGIA [None]
  - ASTHENIA [None]
  - BLOOD COUNT ABNORMAL [None]
  - CULTURE STOOL POSITIVE [None]
  - DEHYDRATION [None]
  - DRUG INEFFECTIVE [None]
  - ENTEROBACTER INFECTION [None]
  - FEBRILE NEUTROPENIA [None]
  - HEPATIC CIRRHOSIS [None]
  - HICCUPS [None]
  - HYPOKALAEMIA [None]
  - LIVER FUNCTION TEST [None]
  - LIVER FUNCTION TEST ABNORMAL [None]
  - PNEUMONIA [None]
  - PRODUCTIVE COUGH [None]
  - RENAL FAILURE ACUTE [None]
  - SPUTUM CULTURE POSITIVE [None]
  - STAPHYLOCOCCAL INFECTION [None]
  - STRONGYLOIDIASIS [None]
  - VOMITING [None]
